FAERS Safety Report 9605218 (Version 1)
Quarter: 2013Q4

REPORT INFORMATION
  Report Type: Spontaneous
  Country: PH (occurrence: PH)
  Receive Date: 20131008
  Receipt Date: 20131008
  Transmission Date: 20140711
  Serious: Yes (Death, Other)
  Sender: FDA-Public Use
  Company Number: PH-MERCK-1310PHL002297

PATIENT
  Sex: Female

DRUGS (2)
  1. COZAAR [Suspect]
     Dosage: 1 TABLET, ONCE A DAY
     Route: 048
  2. JANUVIA [Suspect]
     Route: 048

REACTIONS (1)
  - Pancreatic carcinoma [Fatal]
